FAERS Safety Report 8389837-4 (Version None)
Quarter: 2012Q2

REPORT INFORMATION
  Report Type: 
  Country: None (occurrence: None)
  Receive Date: 20120529
  Receipt Date: 20120524
  Transmission Date: 20120825
  Serious: Yes (Hospitalization)
  Sender: FDA-Public Use
  Company Number: CA-BAYER-2012-013099

PATIENT
  Age: 43 Year
  Sex: Female

DRUGS (3)
  1. MIRENA [Suspect]
     Indication: CONTRACEPTION
  2. MIRENA [Suspect]
     Indication: MENSTRUAL CYCLE MANAGEMENT
     Dosage: 20 MCG/24HR, CONT
     Route: 015
     Dates: start: 20111127
  3. MIRENA [Suspect]
     Indication: ENDOMETRIOSIS

REACTIONS (9)
  - BLOOD CREATINE PHOSPHOKINASE INCREASED [None]
  - PROTEINURIA [None]
  - ALOPECIA [None]
  - NEPHROTIC SYNDROME [None]
  - BLOOD PRESSURE INCREASED [None]
  - HYPERTENSION [None]
  - MYALGIA [None]
  - RENAL IMPAIRMENT [None]
  - MYOSITIS [None]
